FAERS Safety Report 6104530-6 (Version None)
Quarter: 2009Q1

REPORT INFORMATION
  Report Type: 
  Country: None (occurrence: None)
  Receive Date: 20090305
  Receipt Date: 20090224
  Transmission Date: 20090719
  Serious: Yes (Life-Threatening, Other)
  Sender: FDA-Public Use
  Company Number: HQWYE488122FEB07

PATIENT
  Sex: Male
  Weight: 66 kg

DRUGS (22)
  1. MYLOTARG [Suspect]
     Indication: ACUTE MYELOID LEUKAEMIA RECURRENT
     Route: 041
     Dates: start: 20061215, end: 20061215
  2. MYLOTARG [Suspect]
     Route: 041
     Dates: start: 20061229, end: 20061229
  3. FUNGUARD [Concomitant]
     Indication: PROPHYLAXIS
     Route: 041
     Dates: start: 20061204, end: 20061225
  4. CARBENIN [Concomitant]
     Indication: PROPHYLAXIS
     Route: 041
     Dates: start: 20061225, end: 20070107
  5. AMBISOME [Suspect]
     Indication: PROPHYLAXIS
     Route: 041
     Dates: start: 20061226, end: 20070130
  6. GRAN [Concomitant]
     Indication: NEUTROPHIL COUNT DECREASED
     Route: 041
     Dates: start: 20061219, end: 20061228
  7. GRAN [Concomitant]
     Route: 041
     Dates: start: 20061230, end: 20070119
  8. CRAVIT [Concomitant]
     Indication: PROPHYLAXIS
     Route: 048
     Dates: start: 20061213, end: 20070123
  9. BAKTAR [Concomitant]
     Indication: PROPHYLAXIS
     Dosage: 1 DOSE FORM/DAY
     Route: 048
     Dates: start: 20061213
  10. BIO THREE [Concomitant]
     Indication: PROPHYLAXIS
     Route: 048
     Dates: start: 20061213, end: 20070123
  11. ALLOID [Concomitant]
     Indication: PROPHYLAXIS
     Route: 048
     Dates: start: 20061213
  12. CONIEL [Concomitant]
     Indication: HYPERTENSION
     Route: 048
     Dates: start: 20061221
  13. ALOSITOL [Concomitant]
     Indication: PROPHYLAXIS
     Route: 048
     Dates: start: 20061214, end: 20061220
  14. CALONAL [Concomitant]
     Indication: PYREXIA
     Route: 048
     Dates: start: 20061212, end: 20061220
  15. LASIX [Concomitant]
     Indication: CARDIAC FAILURE CONGESTIVE
     Route: 041
     Dates: start: 20061216
  16. SOLU-CORTEF [Suspect]
     Indication: PROPHYLAXIS
     Route: 041
     Dates: start: 20061218
  17. MEROPEN [Concomitant]
     Indication: PROPHYLAXIS
     Route: 041
     Dates: start: 20070108, end: 20070112
  18. CHLORAMPHENICOL SODIUM SUCCINATE [Concomitant]
     Indication: STAPHYLOCOCCAL INFECTION
     Route: 042
     Dates: start: 20070113, end: 20070126
  19. MINOCYCLINE HYDROCHLORIDE [Concomitant]
     Indication: PROPHYLAXIS
     Route: 041
     Dates: start: 20070127, end: 20070131
  20. HUMULIN R [Concomitant]
     Indication: DIABETES MELLITUS
     Dosage: DOSE AND FREQUENCY NOT PROVIDED
     Route: 041
     Dates: start: 20070106
  21. SWORD [Concomitant]
     Indication: PROPHYLAXIS
     Route: 048
     Dates: start: 20070124
  22. MAXIPIME [Concomitant]
     Indication: PROPHYLAXIS
     Route: 041
     Dates: start: 20061204, end: 20061224

REACTIONS (9)
  - CONDITION AGGRAVATED [None]
  - DISSEMINATED INTRAVASCULAR COAGULATION [None]
  - GLUCOSE TOLERANCE IMPAIRED [None]
  - HAEMOLYTIC ANAEMIA [None]
  - HYPOKALAEMIA [None]
  - LEFT VENTRICULAR DYSFUNCTION [None]
  - PLATELET COUNT DECREASED [None]
  - STAPHYLOCOCCAL SEPSIS [None]
  - WHITE BLOOD CELL COUNT DECREASED [None]
